FAERS Safety Report 10243552 (Version 2)
Quarter: 2014Q2

REPORT INFORMATION
  Report Type: Spontaneous
  Country: JP (occurrence: None)
  Receive Date: 20140616
  Receipt Date: 20140620
  Transmission Date: 20141212
  Serious: Yes (Other)
  Sender: FDA-Public Use
  Company Number: 2014157618

PATIENT
  Sex: Male
  Weight: .9 kg

DRUGS (3)
  1. DALTEPARIN SODIUM [Suspect]
     Dosage: 4800 IU, 1X/DAY
  2. HEPARIN SODIUM [Suspect]
  3. PREDNISOLON [Suspect]
     Route: 048

REACTIONS (8)
  - Maternal drugs affecting foetus [None]
  - Foetal growth restriction [None]
  - Antiphospholipid syndrome [None]
  - Caesarean section [None]
  - Pancytopenia [None]
  - Coagulation test abnormal [None]
  - Gastrointestinal perforation [None]
  - Foetal exposure during pregnancy [None]
